FAERS Safety Report 4552632-8 (Version None)
Quarter: 2005Q1

REPORT INFORMATION
  Report Type: 
  Country: None (occurrence: None)
  Receive Date: 20050114
  Receipt Date: 20050104
  Transmission Date: 20050727
  Serious: Yes (Life-Threatening)
  Sender: FDA-Public Use
  Company Number: FR-JNJFOC-20050100961

PATIENT
  Age: 50 Year
  Sex: Male

DRUGS (2)
  1. REMICADE [Suspect]
     Dosage: SCHEDULED DATE FOR THE 6TH INFUSION BUT NOT CONFIRMED IF PATIENT RECEIVED THIS.
     Route: 042
  2. REMICADE [Suspect]
     Dosage: 5 INFUSIONS ADMINISTERED.
     Route: 042

REACTIONS (2)
  - LYMPHADENOPATHY [None]
  - SQUAMOUS CELL CARCINOMA OF SKIN [None]
